FAERS Safety Report 23081389 (Version 2)
Quarter: 2023Q4

REPORT INFORMATION
  Report Type: Spontaneous
  Country: CN (occurrence: CN)
  Receive Date: 20231018
  Receipt Date: 20231120
  Transmission Date: 20240110
  Serious: Yes (Other)
  Sender: FDA-Public Use
  Company Number: CN-Eisai-EC-2023-150505

PATIENT
  Age: 53 Year
  Sex: Female

DRUGS (4)
  1. RABEPRAZOLE [Suspect]
     Active Substance: RABEPRAZOLE
     Indication: Helicobacter infection
     Dosage: FREQUENCY UNKNOWN
     Route: 048
     Dates: start: 20230926, end: 20231001
  2. CLARITHROMYCIN [Suspect]
     Active Substance: CLARITHROMYCIN
     Indication: Helicobacter infection
     Dosage: FREQUENCY UNKNOWN
     Route: 048
     Dates: start: 20230926, end: 20231001
  3. BISMUTH SUBCITRATE [Suspect]
     Active Substance: BISMUTH SUBCITRATE
     Indication: Helicobacter infection
     Dosage: FREQUENCY UNKNOWN
     Route: 048
     Dates: start: 20230926, end: 20231001
  4. AMOXICILLIN [Suspect]
     Active Substance: AMOXICILLIN
     Indication: Helicobacter infection
     Dosage: FREQUENCY UNKNOWN
     Route: 048
     Dates: start: 20230926, end: 20231001

REACTIONS (1)
  - Drug eruption [Recovering/Resolving]

NARRATIVE: CASE EVENT DATE: 20230929
